FAERS Safety Report 9996683 (Version 2)
Quarter: 2014Q1

REPORT INFORMATION
  Report Type: Spontaneous
  Country: BR (occurrence: BR)
  Receive Date: 20140311
  Receipt Date: 20140313
  Transmission Date: 20141002
  Serious: Yes (Other)
  Sender: FDA-Public Use
  Company Number: BR-PFIZER INC-2014066611

PATIENT
  Sex: Female

DRUGS (11)
  1. ADVIL [Suspect]
     Indication: TORTICOLLIS
     Dosage: 1 CAPSULE 400 MG, DAILY (AT NIGHT)
     Route: 048
     Dates: start: 20140305
  2. ADVIL [Suspect]
     Indication: PAIN
  3. EPEZ [Concomitant]
  4. VIMOVO [Concomitant]
  5. INDAPEN [Concomitant]
  6. TORLOS [Concomitant]
  7. DAFLON [Concomitant]
  8. OSSOTRAT-D [Concomitant]
  9. ZETSIM [Concomitant]
  10. BEZAFIBRATE [Concomitant]
  11. GREEN TEA [Concomitant]

REACTIONS (2)
  - Dysentery [Recovered/Resolved]
  - Diarrhoea [Recovered/Resolved]
